FAERS Safety Report 9703355 (Version 3)
Quarter: 2013Q4

REPORT INFORMATION
  Report Type: Report from Study
  Country: IN (occurrence: IN)
  Receive Date: 20131122
  Receipt Date: 20131226
  Transmission Date: 20140711
  Serious: Yes (Hospitalization)
  Sender: FDA-Public Use
  Company Number: PHHO2013IN012064

PATIENT
  Sex: 0

DRUGS (40)
  1. BLINDED ALISKIREN [Suspect]
     Indication: CARDIAC FAILURE
     Dosage: CODE NOT BROKEN
     Route: 048
     Dates: start: 20130617, end: 20130915
  2. BLINDED ENALAPRIL [Suspect]
     Indication: CARDIAC FAILURE
     Dosage: CODE NOT BROKEN
     Route: 048
     Dates: start: 20130617, end: 20130915
  3. BLINDED NO TREATMENT RECEIVED [Suspect]
     Indication: CARDIAC FAILURE
     Dosage: CODE NOT BROKEN
     Route: 048
     Dates: start: 20130617, end: 20130915
  4. BLINDED ALISKIREN [Suspect]
     Dosage: CODE NOT BROKEN
     Route: 048
     Dates: start: 20131217
  5. BLINDED ENALAPRIL [Suspect]
     Dosage: CODE NOT BROKEN
     Route: 048
     Dates: start: 20131217
  6. BLINDED NO TREATMENT RECEIVED [Suspect]
     Dosage: CODE NOT BROKEN
     Route: 048
     Dates: start: 20131217
  7. ISOSORBIDE DINITRATE,PINDOLOL [Suspect]
     Indication: MYOCARDIAL ISCHAEMIA
     Dosage: 5 MG, TID
     Route: 048
     Dates: start: 20130903, end: 20130915
  8. ISOSORBIDE DINITRATE,PINDOLOL [Suspect]
     Dosage: 5 MG, SOS
     Route: 048
     Dates: start: 20131004
  9. OLMESARTAN MEDOXOMIL [Suspect]
     Indication: CARDIAC FAILURE CONGESTIVE
     Dosage: 40 MG, ONCE/SINGLE, DAILY
     Route: 048
     Dates: start: 20130905, end: 20130915
  10. TORSEMIDE [Suspect]
     Indication: CARDIAC FAILURE CHRONIC
     Dosage: 40 MG, ONCE/SINGLE, DAILY
     Route: 048
     Dates: start: 20130905, end: 20130915
  11. SPIRONOLACTONE [Suspect]
     Indication: CARDIAC FAILURE CONGESTIVE
     Dosage: 50 MG, ONCE/SINGLE, DAILY
     Route: 048
     Dates: start: 20130902, end: 20130915
  12. SPIRONOLACTONE [Suspect]
     Dosage: 25 MG, BID
     Route: 048
     Dates: start: 20130918, end: 20131115
  13. AMOXICILLIN [Concomitant]
     Indication: BRONCHITIS
     Dosage: 500 MG, BID
     Route: 048
     Dates: start: 20130903, end: 20130915
  14. ASA [Concomitant]
     Indication: MYOCARDIAL ISCHAEMIA
     Dosage: 150 MG, ONCE/SINGLE, DAILY
     Route: 048
     Dates: start: 20111113, end: 20130915
  15. ASA [Concomitant]
     Dosage: 75 MG, ONCE/SINGLE, DAILY
     Route: 048
     Dates: start: 20131217
  16. CLOPIDOGREL [Concomitant]
     Indication: MYOCARDIAL ISCHAEMIA
     Dosage: 75 MG, ONCE/SINGLE, DAILY
     Route: 048
     Dates: start: 20111113, end: 20130915
  17. CLOPIDOGREL [Concomitant]
     Dosage: UNK
     Dates: start: 20131217
  18. ACEBROFYLLINE [Concomitant]
     Indication: BRONCHITIS
     Dosage: 100 MG, ONCE/SINGLE, DAILY
     Route: 048
     Dates: start: 20130903, end: 20130915
  19. ATORVASTATIN [Concomitant]
     Indication: HYPERLIPIDAEMIA
     Dosage: 10 MG, ONCE/SINGLE, DAILY
     Route: 048
     Dates: start: 20120712, end: 20130915
  20. LEVOTHYROXINE SODIUM [Concomitant]
     Indication: HYPOTHYROIDISM
     Dosage: 75 UG, ONCE/SINGLE, DAILY
     Route: 048
     Dates: start: 20130802, end: 20130915
  21. LEVOTHYROXINE SODIUM [Concomitant]
     Dosage: 50 UG, ONCE/SINGLE, DAILY
     Route: 048
     Dates: start: 20131115
  22. PANTOPRAZOLE [Concomitant]
     Indication: PROPHYLAXIS
     Dosage: 40 MG, ONCE/SINGLE, DAILY
     Route: 048
     Dates: start: 20130901
  23. BEPLEX FORTE [Concomitant]
     Indication: SUPPLEMENTATION THERAPY
     Dosage: ONCE/SINGLE, DAILY
     Route: 048
     Dates: start: 20130901
  24. IPRATROPIUM BROMIDE [Concomitant]
     Indication: BRONCHITIS
     Dosage: 500 UG, TID
     Route: 055
     Dates: start: 20130905, end: 20130915
  25. IPRATROPIUM BROMIDE [Concomitant]
     Dosage: 500 UG, SOS
     Route: 055
     Dates: start: 20130916
  26. ALPRAZOLAM [Concomitant]
     Indication: INSOMNIA
     Dosage: 0.25 MG, SOS
     Route: 048
     Dates: start: 20130905, end: 20130915
  27. ALPRAZOLAM [Concomitant]
     Dosage: 0.25 MG, ONCE/SINGLE, DAILY
     Route: 048
     Dates: start: 20130915
  28. ALPRAZOLAM [Concomitant]
     Dosage: 0.25 MG, SOS
     Route: 048
     Dates: start: 20130919
  29. DUPHALAC [Concomitant]
     Indication: CONSTIPATION PROPHYLAXIS
     Dosage: 30 ML, SOS
     Route: 048
     Dates: start: 20130905, end: 20130915
  30. DUPHALAC [Concomitant]
     Dosage: 30 ML, BID
     Route: 048
     Dates: start: 20130916
  31. DUPHALAC [Concomitant]
     Dosage: 30 ML, ONCE/SINGLE, DAILY
     Route: 048
     Dates: start: 20130917
  32. DUPHALAC [Concomitant]
     Dosage: 30 ML, SOS
     Route: 048
     Dates: start: 20130919
  33. FUROSEMIDE [Concomitant]
     Indication: PROPHYLAXIS
     Dosage: 20 MG, SOS
     Route: 048
     Dates: start: 20131115
  34. CLAVULANIC ACID [Concomitant]
     Indication: BRONCHITIS
     Dosage: 125 MG, BID
     Route: 048
     Dates: start: 20130903, end: 20130915
  35. CEFIXIME [Concomitant]
     Indication: PROPHYLAXIS
     Dosage: 200 MG, BID
     Route: 048
     Dates: start: 20130916
  36. KESOL [Concomitant]
     Indication: HYPOKALAEMIA
     Dosage: 1 DF, STAT
     Route: 042
     Dates: start: 20130916
  37. LEVOSALBUTAMOL [Concomitant]
     Indication: BRONCHITIS
     Dosage: 1.25 MG, TID
     Route: 055
     Dates: start: 20130905, end: 20130915
  38. LEVOSALBUTAMOL [Concomitant]
     Dosage: 1.25 MG, SOS
     Route: 055
     Dates: start: 20130916
  39. BETAHISTINE HYDROCHLORIDE [Concomitant]
     Indication: VERTIGO
     Dosage: 16 MG, BID
     Route: 048
     Dates: start: 20130916
  40. BETAHISTINE HYDROCHLORIDE [Concomitant]
     Dosage: 8 MG, BID
     Route: 048
     Dates: start: 20131004

REACTIONS (2)
  - Orthostatic hypotension [Recovered/Resolved]
  - Electrolyte imbalance [Recovered/Resolved]
